FAERS Safety Report 23035902 (Version 1)
Quarter: 2023Q4

REPORT INFORMATION
  Report Type: Report from Study
  Country: US (occurrence: US)
  Receive Date: 20231006
  Receipt Date: 20231006
  Transmission Date: 20240109
  Serious: Yes (Other)
  Sender: FDA-Public Use
  Company Number: US-ABBVIE-5436511

PATIENT
  Sex: Male

DRUGS (1)
  1. HUMIRA [Suspect]
     Active Substance: ADALIMUMAB
     Indication: Crohn^s disease
     Route: 058
     Dates: start: 20170324

REACTIONS (6)
  - Colitis [Unknown]
  - Haemorrhoids [Unknown]
  - Large intestinal obstruction [Unknown]
  - Gastrointestinal mucosal disorder [Unknown]
  - Erythema [Unknown]
  - Haemorrhage [Unknown]
